FAERS Safety Report 6917609-3 (Version None)
Quarter: 2010Q3

REPORT INFORMATION
  Report Type: 
  Country: None (occurrence: None)
  Receive Date: 20100810
  Receipt Date: 20100729
  Transmission Date: 20110219
  Serious: Yes (Disabling, Other)
  Sender: FDA-Public Use
  Company Number: DE-ELI_LILLY_AND_COMPANY-DE201005000823

PATIENT
  Sex: Female

DRUGS (4)
  1. HUMULIN R [Suspect]
     Indication: DEPRESSION
     Dosage: UNK, UNKNOWN
     Route: 058
  2. HUMINSULIN-N [Concomitant]
     Dosage: UNK, UNKNOWN
     Route: 065
  3. METFORMIN [Concomitant]
     Dosage: 850 MG, 2/D
     Route: 065
  4. ASPIRIN [Concomitant]
     Dosage: UNK, UNKNOWN
     Route: 065

REACTIONS (3)
  - OFF LABEL USE [None]
  - RETINOPATHY [None]
  - VIRAL INFECTION [None]
